FAERS Safety Report 10224003 (Version 1)
Quarter: 2014Q2

REPORT INFORMATION
  Report Type: Spontaneous
  Country: US (occurrence: US)
  Receive Date: 20140609
  Receipt Date: 20140609
  Transmission Date: 20141212
  Serious: No
  Sender: FDA-Public Use
  Company Number: US-SHIRE-US201402752

PATIENT
  Sex: Male

DRUGS (1)
  1. VYVANSE [Suspect]
     Indication: PRODUCT USED FOR UNKNOWN INDICATION
     Dosage: 50 MG, 1X/DAY:QD
     Route: 048
     Dates: end: 2014

REACTIONS (2)
  - Drug ineffective [Recovered/Resolved]
  - Product quality issue [Recovered/Resolved]
